FAERS Safety Report 26203362 (Version 1)
Quarter: 2025Q4

REPORT INFORMATION
  Report Type: Spontaneous
  Country: US (occurrence: US)
  Receive Date: 20251226
  Receipt Date: 20251226
  Transmission Date: 20260118
  Serious: No
  Sender: ROCHE
  Company Number: US-ROCHE-10000468809

PATIENT
  Age: 44 Year
  Sex: Female

DRUGS (2)
  1. XOLAIR [Suspect]
     Active Substance: OMALIZUMAB
     Indication: Product used for unknown indication
  2. RHAPSIDO [Concomitant]
     Active Substance: REMIBRUTINIB
     Route: 048
     Dates: start: 20251118

REACTIONS (4)
  - Drug ineffective [Unknown]
  - Cough [Unknown]
  - Throat clearing [Unknown]
  - Amnesia [Unknown]
